FAERS Safety Report 5406979-3 (Version None)
Quarter: 2007Q3

REPORT INFORMATION
  Report Type: 
  Country: None (occurrence: None)
  Receive Date: 20070803
  Receipt Date: 20070803
  Transmission Date: 20080115
  Serious: Yes (Other)
  Sender: FDA-Public Use
  Company Number: None

PATIENT
  Sex: Female
  Weight: 61.47 kg

DRUGS (1)
  1. NUBAIN [Suspect]
     Indication: PAIN
     Dates: start: 20070718, end: 20070718

REACTIONS (2)
  - ANXIETY [None]
  - FEELING JITTERY [None]
